FAERS Safety Report 10361390 (Version 1)
Quarter: 2014Q3

REPORT INFORMATION
  Report Type: Spontaneous
  Country: US (occurrence: US)
  Receive Date: 20140805
  Receipt Date: 20140805
  Transmission Date: 20150326
  Serious: Yes (Other)
  Sender: FDA-Public Use
  Company Number: US-ASTRAZENECA-2014SE54708

PATIENT
  Age: 10 Year
  Sex: Male
  Weight: 47 kg

DRUGS (1)
  1. SYMBICORT [Suspect]
     Active Substance: BUDESONIDE\FORMOTEROL FUMARATE DIHYDRATE
     Indication: ASTHMA
     Dosage: 80 4.5MCG, TWO PUFFS BID
     Route: 055
     Dates: start: 201405, end: 201407

REACTIONS (4)
  - Suicidal ideation [Recovered/Resolved]
  - Off label use [Unknown]
  - Depression [Recovered/Resolved]
  - Abnormal behaviour [Recovered/Resolved]
